FAERS Safety Report 13054226 (Version 1)
Quarter: 2016Q4

REPORT INFORMATION
  Report Type: Spontaneous
  Country: US (occurrence: US)
  Receive Date: 20161222
  Receipt Date: 20161222
  Transmission Date: 20170207
  Serious: Yes (Hospitalization)
  Sender: FDA-Public Use
  Company Number: None

PATIENT

DRUGS (1)
  1. HYDROMORPHONE [Suspect]
     Active Substance: HYDROMORPHONE
     Indication: PAIN
     Route: 030
     Dates: start: 20160722, end: 20160722

REACTIONS (3)
  - Accidental overdose [None]
  - Mental status changes [None]
  - Sedation [None]

NARRATIVE: CASE EVENT DATE: 20160722
